FAERS Safety Report 20477724 (Version 1)
Quarter: 2022Q1

REPORT INFORMATION
  Report Type: Spontaneous
  Country: US (occurrence: US)
  Receive Date: 20220216
  Receipt Date: 20220216
  Transmission Date: 20220423
  Serious: No
  Sender: FDA-Public Use
  Company Number: US-BoehringerIngelheim-2022-BI-154144

PATIENT

DRUGS (2)
  1. OFEV [Suspect]
     Active Substance: NINTEDANIB
     Indication: Interstitial lung disease
     Route: 048
     Dates: start: 20200915
  2. OFEV [Suspect]
     Active Substance: NINTEDANIB
     Route: 048

REACTIONS (2)
  - Diarrhoea [Recovered/Resolved]
  - Muscle spasms [Recovered/Resolved]

NARRATIVE: CASE EVENT DATE: 20211001
